FAERS Safety Report 15681502 (Version 2)
Quarter: 2019Q2

REPORT INFORMATION
  Report Type: Spontaneous
  Country: FR (occurrence: FR)
  Receive Date: 20181203
  Receipt Date: 20190502
  Transmission Date: 20190711
  Serious: Yes (Hospitalization)
  Sender: FDA-Public Use
  Company Number: FR-MYLANLABS-2018M1089712

PATIENT
  Age: 80 Year
  Sex: Female
  Weight: 53 kg

DRUGS (4)
  1. BROMAZEPAM [Suspect]
     Active Substance: BROMAZEPAM
     Indication: PRODUCT USED FOR UNKNOWN INDICATION
     Dosage: UNK
     Route: 048
     Dates: start: 20180831, end: 20180831
  2. PREDNISOLONE. [Concomitant]
     Active Substance: PREDNISOLONE
     Dosage: 18 DOSAGE FORM, TOTAL
     Route: 048
     Dates: start: 20180831, end: 20180831
  3. BISOPROLOL [Suspect]
     Active Substance: BISOPROLOL
     Indication: PRODUCT USED FOR UNKNOWN INDICATION
     Dosage: UNK
     Route: 048
     Dates: start: 20180831, end: 20180831
  4. LYRICA [Suspect]
     Active Substance: PREGABALIN
     Indication: PRODUCT USED FOR UNKNOWN INDICATION
     Dosage: 8 DOSAGE FORM, TOTAL
     Route: 048
     Dates: start: 20180831, end: 20180831

REACTIONS (4)
  - Confusional state [Recovered/Resolved]
  - Somnolence [Recovered/Resolved]
  - Intentional overdose [Unknown]
  - Poisoning deliberate [Recovered/Resolved]

NARRATIVE: CASE EVENT DATE: 20180831
